FAERS Safety Report 10627897 (Version 2)
Quarter: 2014Q4

REPORT INFORMATION
  Report Type: Spontaneous
  Country: US (occurrence: US)
  Receive Date: 20141205
  Receipt Date: 20141205
  Transmission Date: 20150529
  Serious: No
  Sender: FDA-Public Use
  Company Number: US-BRISTOL-MYERS SQUIBB COMPANY-21459060

PATIENT
  Age: 72 Year
  Sex: Female
  Weight: 69.39 kg

DRUGS (4)
  1. LISINOPRIL. [Concomitant]
     Active Substance: LISINOPRIL
  2. PROMETHAZINE [Concomitant]
     Active Substance: PROMETHAZINE\PROMETHAZINE HYDROCHLORIDE
  3. ERBITUX [Suspect]
     Active Substance: CETUXIMAB
     Dates: start: 2014
  4. XANAX [Concomitant]
     Active Substance: ALPRAZOLAM

REACTIONS (10)
  - Feeling cold [Unknown]
  - Blister [Unknown]
  - Paraesthesia [Unknown]
  - Decreased appetite [Unknown]
  - Abdominal pain upper [Unknown]
  - Hypoaesthesia [Unknown]
  - Fatigue [Unknown]
  - Constipation [Not Recovered/Not Resolved]
  - Hypotension [Unknown]
  - Pain [Unknown]
